FAERS Safety Report 16526447 (Version 3)
Quarter: 2019Q3

REPORT INFORMATION
  Report Type: Spontaneous
  Country: DE (occurrence: DE)
  Receive Date: 20190703
  Receipt Date: 20190719
  Transmission Date: 20191004
  Serious: Yes (Other)
  Sender: FDA-Public Use
  Company Number: DE-009507513-1905DEU012930

PATIENT
  Age: 68 Year
  Sex: Male

DRUGS (2)
  1. TEMODAL [Suspect]
     Active Substance: TEMOZOLOMIDE
     Dosage: 200 MILLIGRAM/SQ. METER OF BODY SURFACE AREA PER DAY FOR 5 DAYS, EVERY 4 WEELS
     Dates: start: 201805, end: 201808
  2. TEMODAL [Suspect]
     Active Substance: TEMOZOLOMIDE
     Indication: NEUROENDOCRINE CARCINOMA METASTATIC
     Dosage: 200 MG/SQ. METER OF BODY SURFACE AREA PER DAY, FOR 5 DAYS, EVERY 4 WEEKS
     Route: 048
     Dates: start: 201611, end: 201704

REACTIONS (4)
  - Nausea [Recovered/Resolved]
  - Malignant neoplasm progression [Unknown]
  - Coma [Recovered/Resolved]
  - Off label use [Unknown]

NARRATIVE: CASE EVENT DATE: 2016
